FAERS Safety Report 9222275 (Version 1)
Quarter: 2013Q2

REPORT INFORMATION
  Report Type: Spontaneous
  Country: US (occurrence: US)
  Receive Date: 20130410
  Receipt Date: 20130410
  Transmission Date: 20140414
  Serious: No
  Sender: FDA-Public Use
  Company Number: US-TEVA-395115USA

PATIENT
  Age: 76 Year
  Sex: Male
  Weight: 118.04 kg

DRUGS (14)
  1. QNASL [Suspect]
     Indication: SEASONAL ALLERGY
     Route: 055
  2. QNASL [Suspect]
     Indication: PERENNIAL ALLERGY
  3. QNASL [Suspect]
     Indication: SINUS CONGESTION
  4. LEVOTHYROXINE [Concomitant]
     Indication: HYPERTHYROIDISM
     Dosage: QD
     Route: 048
  5. CAPTOPRIL [Concomitant]
     Indication: HYPERTENSION
     Dosage: QD
     Route: 048
  6. FELODOPINE [Concomitant]
     Indication: HYPERTENSION
     Dosage: QD
     Route: 048
  7. SIMVASTATIN [Concomitant]
     Indication: BLOOD CHOLESTEROL INCREASED
     Dosage: QD
     Route: 048
  8. XANAX [Concomitant]
     Indication: SLEEP DISORDER
     Dosage: QHS
     Route: 048
  9. TEMAZEPAM [Concomitant]
     Indication: SLEEP DISORDER
     Dosage: QHS
     Route: 048
  10. NOVOLOG [Concomitant]
     Indication: TYPE 2 DIABETES MELLITUS
     Dosage: SLIDING SCALE
     Route: 058
  11. COMBIVENT [Concomitant]
     Indication: DYSPNOEA
     Dosage: TWO PUFFS PRN
  12. SYMIBCORT [Concomitant]
     Indication: CHRONIC OBSTRUCTIVE PULMONARY DISEASE
     Dosage: TWO PUFFS BID
  13. TRAMADOL [Concomitant]
     Indication: ARTHRITIS
     Dosage: PRN
  14. TRAMADOL [Concomitant]
     Indication: PAIN

REACTIONS (1)
  - Headache [Not Recovered/Not Resolved]
